FAERS Safety Report 4757241-3 (Version None)
Quarter: 2005Q3

REPORT INFORMATION
  Report Type: 
  Country: None (occurrence: None)
  Receive Date: 20050829
  Receipt Date: 20050815
  Transmission Date: 20060218
  Serious: Yes (Other)
  Sender: FDA-Public Use
  Company Number: 2005116185

PATIENT
  Age: 27 Year
  Sex: Male
  Weight: 83.9154 kg

DRUGS (2)
  1. BENADRYL [Suspect]
     Dosage: 1 (4 OZ) BOTTLE ONCE, ORAL
     Route: 048
     Dates: start: 20050815, end: 20050815
  2. DRUG, UNSPECIFIED (DRUG, UNSPECIFIED) [Concomitant]

REACTIONS (3)
  - INTENTIONAL MISUSE [None]
  - LETHARGY [None]
  - OVERDOSE [None]
